FAERS Safety Report 23654223 (Version 1)
Quarter: 2024Q1

REPORT INFORMATION
  Report Type: Spontaneous
  Country: PL (occurrence: PL)
  Receive Date: 20240320
  Receipt Date: 20240320
  Transmission Date: 20240409
  Serious: Yes (Other)
  Sender: FDA-Public Use
  Company Number: PL-AMGEN-POLSP2024051916

PATIENT
  Age: 30 Year
  Sex: Female

DRUGS (1)
  1. CINACALCET HYDROCHLORIDE [Suspect]
     Active Substance: CINACALCET HYDROCHLORIDE
     Indication: Hyperparathyroidism primary
     Dosage: UNK
     Route: 065

REACTIONS (6)
  - Pregnancy related infection [Unknown]
  - Abortion induced [Unknown]
  - Drug effect less than expected [Unknown]
  - Adverse event [Unknown]
  - Placental disorder [Unknown]
  - Maternal exposure during pregnancy [Unknown]
